FAERS Safety Report 17693765 (Version 1)
Quarter: 2020Q2

REPORT INFORMATION
  Report Type: Spontaneous
  Country: US (occurrence: US)
  Receive Date: 20200422
  Receipt Date: 20200422
  Transmission Date: 20200714
  Serious: Yes (Death)
  Sender: FDA-Public Use
  Company Number: None

PATIENT
  Sex: Male

DRUGS (12)
  1. LORAZEPAM. [Concomitant]
     Active Substance: LORAZEPAM
  2. DEXAMETHASON [Concomitant]
     Active Substance: DEXAMETHASONE
  3. ESCITALOPRAM [Concomitant]
     Active Substance: ESCITALOPRAM OXALATE
  4. ENOXAPARIN [Concomitant]
     Active Substance: ENOXAPARIN
  5. TEMOZOLOMIDE. [Suspect]
     Active Substance: TEMOZOLOMIDE
     Indication: BRAIN NEOPLASM MALIGNANT
     Dosage: ?          OTHER FREQUENCY:QD ON DAYS 1-5;?
     Route: 048
     Dates: start: 20191118
  6. LEVETIRACETA SOL [Concomitant]
  7. GENTLE LAXAT SUP [Concomitant]
  8. BACLOFEN. [Concomitant]
     Active Substance: BACLOFEN
  9. ONDANSETRON [Concomitant]
     Active Substance: ONDANSETRON
  10. MEMANTINE. [Concomitant]
     Active Substance: MEMANTINE
  11. VMPAT [Concomitant]
  12. TIZANDINE [Concomitant]
     Active Substance: TIZANIDINE

REACTIONS (1)
  - Death [None]
